FAERS Safety Report 6985489-6 (Version None)
Quarter: 2010Q3

REPORT INFORMATION
  Report Type: 
  Country: None (occurrence: None)
  Receive Date: 20100915
  Receipt Date: 20100906
  Transmission Date: 20110219
  Serious: Yes (Other)
  Sender: FDA-Public Use
  Company Number: B0673415A

PATIENT
  Sex: Female

DRUGS (1)
  1. AVANDIA [Suspect]
     Route: 048

REACTIONS (5)
  - ANGINA PECTORIS [None]
  - CARDIAC ABLATION [None]
  - CHEST PAIN [None]
  - QUALITY OF LIFE DECREASED [None]
  - TACHYCARDIA [None]
